FAERS Safety Report 9155654 (Version 3)
Quarter: 2023Q2

REPORT INFORMATION
  Report Type: Report from Study
  Country: US (occurrence: US)
  Receive Date: 20130311
  Receipt Date: 20230612
  Transmission Date: 20230722
  Serious: Yes (Hospitalization, Other)
  Sender: FDA-Public Use
  Company Number: US-SHIRE-SPV1-2008-02844

PATIENT
  Age: 7 Year
  Sex: Male
  Weight: 26.757 kg

DRUGS (134)
  1. IDURSULFASE [Suspect]
     Active Substance: IDURSULFASE
     Indication: Mucopolysaccharidosis II
     Dosage: 0.57 MILLIGRAM/KILOGRAM, 1/WEEK
     Route: 042
     Dates: start: 20061031
  2. IDURSULFASE [Suspect]
     Active Substance: IDURSULFASE
     Dosage: 0.5 MILLIGRAM/KILOGRAM, 1X/WEEK
     Route: 042
     Dates: start: 20070508
  3. IDURSULFASE [Suspect]
     Active Substance: IDURSULFASE
     Dosage: 0.45 MILLIGRAM/KILOGRAM, 1/WEEK
     Route: 042
     Dates: start: 20090325
  4. IDURSULFASE [Suspect]
     Active Substance: IDURSULFASE
     Dosage: 0.83 MILLIGRAM/KILOGRAM, 1/WEEK
     Route: 042
     Dates: start: 20100324
  5. ACETAZOLAMIDE [Concomitant]
     Active Substance: ACETAZOLAMIDE
     Indication: Hydrocephalus
     Dosage: 250 MILLIGRAM, TID
     Route: 048
     Dates: start: 20081128
  6. ACETAZOLAMIDE [Concomitant]
     Active Substance: ACETAZOLAMIDE
     Dosage: 125 MILLIGRAM, BID
     Route: 048
     Dates: start: 200809, end: 20080922
  7. ACETAZOLAMIDE [Concomitant]
     Active Substance: ACETAZOLAMIDE
     Dosage: UNK
     Route: 048
     Dates: start: 20080220
  8. MELATONIN [Concomitant]
     Active Substance: MELATONIN
     Indication: Sleep disorder
     Dosage: UNK
     Route: 048
     Dates: start: 20080731
  9. NEURONTIN [Concomitant]
     Active Substance: GABAPENTIN
     Indication: Sleep disorder
     Dosage: 50 MILLIGRAM, QD
     Route: 048
     Dates: start: 20080731, end: 2008
  10. NEURONTIN [Concomitant]
     Active Substance: GABAPENTIN
     Dosage: 50 MILLIGRAM, QD
  11. AUGMENTIN [Concomitant]
     Active Substance: AMOXICILLIN\CLAVULANATE POTASSIUM
     Indication: Upper respiratory tract infection
     Dosage: 5 MILLILITER, TID
     Dates: start: 20080620
  12. AUGMENTIN [Concomitant]
     Active Substance: AMOXICILLIN\CLAVULANATE POTASSIUM
     Indication: Otitis media
     Dosage: 10 MILLILITER, BID
     Dates: start: 20080620
  13. AUGMENTIN [Concomitant]
     Active Substance: AMOXICILLIN\CLAVULANATE POTASSIUM
     Indication: Pneumonia
     Dosage: UNK
     Route: 048
     Dates: start: 20071006, end: 20071016
  14. HEPARIN [Concomitant]
     Active Substance: HEPARIN SODIUM
     Indication: Anticoagulant therapy
     Dosage: 500 INTERNATIONAL UNIT, 1/WEEK
     Route: 042
  15. DIASTAT [Concomitant]
     Active Substance: DIAZEPAM
     Indication: Nervous system disorder
     Dosage: 7.5 MILLIGRAM
     Route: 030
     Dates: start: 20081008
  16. FERROUS SULFATE [Concomitant]
     Active Substance: FERROUS SULFATE
     Indication: Blood iron abnormal
     Dosage: 300 MILLIGRAM, QD
     Route: 048
     Dates: start: 20081007
  17. FLOVENT [Concomitant]
     Active Substance: FLUTICASONE PROPIONATE
     Indication: Wheezing
     Dosage: 2 DOSAGE FORM
     Route: 065
  18. NORFLOXACIN [Concomitant]
     Active Substance: NORFLOXACIN
     Indication: Ear disorder
     Dosage: UNK
     Route: 065
     Dates: start: 200909
  19. VANCOMYCIN [Concomitant]
     Active Substance: VANCOMYCIN
     Indication: Pseudomonas infection
     Dosage: UNK
     Route: 065
     Dates: start: 20080918
  20. VANCOMYCIN [Concomitant]
     Active Substance: VANCOMYCIN
     Dosage: UNK
     Route: 042
     Dates: start: 20150617, end: 20150619
  21. VANCOMYCIN [Concomitant]
     Active Substance: VANCOMYCIN
     Dosage: UNK
     Route: 042
     Dates: start: 20160319, end: 20160321
  22. CEFOTAXIME [Concomitant]
     Active Substance: CEFOTAXIME SODIUM
     Indication: Product used for unknown indication
     Dosage: UNK
     Route: 065
     Dates: start: 20080919
  23. DIAMOX SEQUELS [Concomitant]
     Active Substance: ACETAZOLAMIDE
     Indication: Product used for unknown indication
     Dosage: 250 MILLIGRAM, TID
     Route: 065
     Dates: start: 20080919
  24. AMPICILLIN COMP [Concomitant]
     Indication: Anti-infective therapy
     Dosage: 10 MILLILITER, BID
     Route: 048
     Dates: start: 20080122
  25. AMPICILLIN COMP [Concomitant]
     Dosage: 5 MILLILITER, TID
     Route: 048
     Dates: start: 20080620
  26. UNSPECIFIED INGREDIENT [Concomitant]
     Active Substance: UNSPECIFIED INGREDIENT
     Indication: Anticoagulant therapy
     Dosage: 500 INTERNATIONAL UNIT, 1/WEEK
     Route: 042
     Dates: start: 20070130
  27. XOPENEX [Concomitant]
     Active Substance: LEVALBUTEROL HYDROCHLORIDE
     Indication: Respiratory disorder
     Dosage: 0.31 MILLIGRAM, QD
     Route: 055
     Dates: start: 2005
  28. XOPENEX [Concomitant]
     Active Substance: LEVALBUTEROL HYDROCHLORIDE
     Indication: Obstructive airways disorder
     Dosage: UNK
     Route: 055
     Dates: start: 20120516
  29. PULMICORT TURBUHALER [Concomitant]
     Active Substance: BUDESONIDE
     Indication: Respiratory disorder
     Dosage: 0.25 MILLIGRAM, BID
     Route: 055
     Dates: start: 2005
  30. PULMICORT TURBUHALER [Concomitant]
     Active Substance: BUDESONIDE
     Dosage: UNK
     Route: 055
     Dates: start: 20080709, end: 20080720
  31. DEXAMETHASONE [Concomitant]
     Active Substance: DEXAMETHASONE
     Indication: Premedication
     Dosage: UNK
     Route: 065
  32. DEXAMETHASONE [Concomitant]
     Active Substance: DEXAMETHASONE
     Dosage: UNK
     Route: 042
     Dates: start: 20080717, end: 20080720
  33. DEXAMETHASONE [Concomitant]
     Active Substance: DEXAMETHASONE
     Dosage: UNK
     Route: 042
     Dates: start: 20080717, end: 20080717
  34. CEFTRIAXONE [Concomitant]
     Active Substance: CEFTRIAXONE
     Indication: Anti-infective therapy
     Dosage: UNK
     Route: 042
     Dates: start: 20070719, end: 20070719
  35. CEFTRIAXONE [Concomitant]
     Active Substance: CEFTRIAXONE
     Dosage: UNK
     Route: 042
     Dates: start: 20071002, end: 20071002
  36. CEPHALEXIN [Concomitant]
     Active Substance: CEPHALEXIN
     Indication: Anti-infective therapy
     Dosage: UNK
     Route: 048
     Dates: start: 20070720, end: 20070731
  37. ZITHROMAX [Concomitant]
     Active Substance: AZITHROMYCIN DIHYDRATE
     Indication: Anti-infective therapy
     Dosage: UNK
     Route: 048
     Dates: start: 20071002, end: 20071002
  38. ZITHROMAX [Concomitant]
     Active Substance: AZITHROMYCIN DIHYDRATE
     Indication: Otitis media
     Dosage: UNK
     Route: 048
     Dates: start: 20071003, end: 20071005
  39. AMPICILLIN [Concomitant]
     Active Substance: AMPICILLIN
     Indication: Anti-infective therapy
     Dosage: UNK
     Route: 042
     Dates: start: 20080410, end: 20080410
  40. OXYCODONE [Concomitant]
     Active Substance: OXYCODONE
     Indication: Pain
     Dosage: UNK
     Route: 048
     Dates: start: 20080720, end: 20080724
  41. OXYCODONE [Concomitant]
     Active Substance: OXYCODONE
     Dosage: UNK
     Route: 048
     Dates: start: 20081229, end: 20081231
  42. OXYCODONE [Concomitant]
     Active Substance: OXYCODONE
     Dosage: UNK
     Route: 048
     Dates: start: 20090112, end: 200901
  43. OXYCODONE [Concomitant]
     Active Substance: OXYCODONE
     Dosage: UNK
     Route: 048
     Dates: start: 20120204, end: 20120209
  44. PREDNISONE [Concomitant]
     Active Substance: PREDNISONE
     Indication: Respiratory tract oedema
     Dosage: UNK
     Route: 048
     Dates: start: 20080720, end: 20080722
  45. PREDNISONE [Concomitant]
     Active Substance: PREDNISONE
     Dosage: UNK
     Route: 048
     Dates: start: 20080723, end: 20080725
  46. ACETAMINOPHEN [Concomitant]
     Active Substance: ACETAMINOPHEN
     Indication: Pain
     Dosage: UNK
     Route: 048
     Dates: start: 20080720, end: 20080725
  47. ACETAMINOPHEN [Concomitant]
     Active Substance: ACETAMINOPHEN
     Dosage: UNK
     Route: 048
     Dates: start: 20081230, end: 20081231
  48. ACETAMINOPHEN [Concomitant]
     Active Substance: ACETAMINOPHEN
     Dosage: UNK
     Route: 042
     Dates: start: 20120130, end: 20120306
  49. OXACILLIN [Concomitant]
     Active Substance: OXACILLIN SODIUM
     Indication: Anti-infective therapy
     Dosage: UNK
     Route: 042
     Dates: start: 20080926, end: 20080926
  50. PHYTONADIONE [Concomitant]
     Active Substance: PHYTONADIONE
     Indication: Coagulopathy
     Dosage: UNK
     Route: 058
     Dates: start: 20081229, end: 20081231
  51. IBUPROFEN [Concomitant]
     Active Substance: IBUPROFEN
     Indication: Pain
     Dosage: UNK
     Route: 048
     Dates: start: 20081231, end: 20081231
  52. IBUPROFEN [Concomitant]
     Active Substance: IBUPROFEN
     Dosage: UNK
     Route: 048
     Dates: start: 20120309, end: 20121130
  53. SIMETHICONE (DIMETHICONE) [Concomitant]
     Active Substance: DIMETHICONE
     Indication: Constipation
     Dosage: UNK
     Route: 048
     Dates: start: 20110507, end: 20110507
  54. ALBUTEROL [Concomitant]
     Active Substance: ALBUTEROL
     Indication: Bronchospasm
     Dosage: UNK
     Route: 055
     Dates: start: 20120206, end: 20120306
  55. ALBUTEROL [Concomitant]
     Active Substance: ALBUTEROL
     Dosage: UNK
     Route: 055
     Dates: start: 20120312, end: 20120516
  56. ALBUTEROL [Concomitant]
     Active Substance: ALBUTEROL
     Dosage: UNK
     Route: 055
     Dates: start: 2013, end: 20150204
  57. ROCEPHIN [Concomitant]
     Active Substance: CEFTRIAXONE SODIUM
     Indication: Bronchitis
     Dosage: UNK
     Route: 042
     Dates: start: 20120104, end: 20120104
  58. CEFDINIR [Concomitant]
     Active Substance: CEFDINIR
     Indication: Bronchitis
     Dosage: UNK
     Route: 048
     Dates: start: 20120105, end: 20120119
  59. PROPOFOL [Concomitant]
     Active Substance: PROPOFOL
     Indication: Sedation
     Dosage: UNK
     Route: 042
     Dates: start: 20120130, end: 20120202
  60. MORPHINE [Concomitant]
     Active Substance: MORPHINE
     Indication: Pain
     Dosage: UNK
     Route: 042
     Dates: start: 20120130, end: 20120204
  61. DEXMEDETOMIDINE [Concomitant]
     Active Substance: DEXMEDETOMIDINE
     Indication: Endotracheal intubation
     Dosage: UNK
     Route: 042
     Dates: start: 20120130, end: 20120204
  62. FUROSEMIDE [Concomitant]
     Active Substance: FUROSEMIDE
     Indication: Oedema
     Dosage: UNK
     Route: 042
     Dates: start: 20120202, end: 20120202
  63. ATIVAN [Concomitant]
     Active Substance: LORAZEPAM
     Indication: Agitation
     Dosage: UNK
     Route: 042
     Dates: start: 20120204, end: 20120206
  64. CLINDAMYCIN [Concomitant]
     Active Substance: CLINDAMYCIN
     Indication: Prophylaxis
     Dosage: UNK
     Route: 042
     Dates: start: 20120206, end: 20120214
  65. CLINDAMYCIN [Concomitant]
     Active Substance: CLINDAMYCIN
     Dosage: UNK
     Route: 042
     Dates: start: 20121204, end: 20121226
  66. NYSTATIN [Concomitant]
     Active Substance: NYSTATIN
     Indication: Prophylaxis
     Dosage: UNK
     Route: 061
     Dates: start: 20120206, end: 20120312
  67. NYSTATIN [Concomitant]
     Active Substance: NYSTATIN
     Dosage: UNK
     Route: 061
     Dates: start: 201211, end: 20121204
  68. NYSTATIN [Concomitant]
     Active Substance: NYSTATIN
     Dosage: UNK
     Route: 061
     Dates: start: 201302
  69. HALOPERIDOL [Concomitant]
     Active Substance: HALOPERIDOL
     Indication: Agitation
     Dosage: UNK
     Route: 042
     Dates: start: 20120206, end: 20120210
  70. GLYCOPYRROLATE [Concomitant]
     Active Substance: GLYCOPYRROLATE
     Indication: Secretion discharge
     Dosage: UNK
     Route: 042
     Dates: start: 20120208, end: 20120210
  71. GLYCOPYRROLATE [Concomitant]
     Active Substance: GLYCOPYRROLATE
     Indication: Constipation
     Dosage: UNK
     Route: 048
     Dates: start: 20120212, end: 20120306
  72. GLYCOPYRROLATE [Concomitant]
     Active Substance: GLYCOPYRROLATE
     Dosage: UNK
     Route: 048
     Dates: start: 20120312, end: 201207
  73. DOCUSATE [Concomitant]
     Active Substance: DOCUSATE
     Indication: Constipation
     Dosage: UNK
     Route: 048
     Dates: start: 20120209, end: 20120210
  74. DOCUSATE [Concomitant]
     Active Substance: DOCUSATE
     Dosage: UNK
     Route: 048
     Dates: start: 20120215, end: 20120306
  75. DOCUSATE [Concomitant]
     Active Substance: DOCUSATE
     Dosage: UNK
     Route: 048
     Dates: start: 20120312, end: 20121130
  76. GABAPENTIN [Concomitant]
     Active Substance: GABAPENTIN
     Indication: Pain
     Dosage: UNK
     Route: 042
     Dates: start: 20120210, end: 20120306
  77. POLYETHYLENE GLYCOL [Concomitant]
     Active Substance: POLYETHYLENE GLYCOL
     Indication: Constipation
     Dosage: UNK
     Route: 048
     Dates: start: 20120212, end: 20120306
  78. POLYETHYLENE GLYCOL [Concomitant]
     Active Substance: POLYETHYLENE GLYCOL
     Dosage: UNK
     Route: 048
     Dates: start: 20120309, end: 20150204
  79. POLYETHYLENE GLYCOL [Concomitant]
     Active Substance: POLYETHYLENE GLYCOL
     Dosage: UNK
     Route: 048
     Dates: start: 20150624
  80. TOBRAMYCIN [Concomitant]
     Active Substance: TOBRAMYCIN
     Indication: Pseudomonas infection
     Dosage: UNK
     Route: 055
     Dates: start: 20120212, end: 20120225
  81. TOBRAMYCIN [Concomitant]
     Active Substance: TOBRAMYCIN
     Dosage: UNK
     Route: 055
     Dates: start: 20120229, end: 20120312
  82. TOBRAMYCIN [Concomitant]
     Active Substance: TOBRAMYCIN
     Dosage: UNK
     Route: 055
     Dates: start: 20120406, end: 20120420
  83. TOBRAMYCIN [Concomitant]
     Active Substance: TOBRAMYCIN
     Dosage: UNK
     Route: 055
     Dates: start: 20120516, end: 20121204
  84. TOBRAMYCIN [Concomitant]
     Active Substance: TOBRAMYCIN
     Dosage: UNK
     Route: 055
     Dates: start: 201212, end: 201307
  85. TOBRAMYCIN [Concomitant]
     Active Substance: TOBRAMYCIN
     Dosage: UNK
     Route: 055
     Dates: start: 20140211, end: 20140225
  86. CIPROFLOXACIN [Concomitant]
     Active Substance: CIPROFLOXACIN
     Indication: Infection
     Dosage: UNK
     Route: 048
     Dates: start: 20120303, end: 20120318
  87. CIPROFLOXACIN [Concomitant]
     Active Substance: CIPROFLOXACIN
     Dosage: UNK
     Route: 048
     Dates: start: 20150204, end: 201502
  88. LORAZEPAM [Concomitant]
     Active Substance: LORAZEPAM
     Indication: Agitation
     Dosage: UNK
     Route: 048
     Dates: start: 20120306, end: 201203
  89. LORAZEPAM [Concomitant]
     Active Substance: LORAZEPAM
     Dosage: UNK
     Route: 048
     Dates: start: 20120306
  90. LORAZEPAM [Concomitant]
     Active Substance: LORAZEPAM
     Dosage: UNK
     Route: 048
     Dates: start: 2015
  91. VERSED [Concomitant]
     Active Substance: MIDAZOLAM HYDROCHLORIDE
     Indication: Agitation
     Dosage: UNK
     Route: 045
     Dates: start: 20120307, end: 20120307
  92. LIDOCAINE [Concomitant]
     Active Substance: LIDOCAINE
     Indication: Pain
     Dosage: UNK
     Route: 061
     Dates: start: 20120307
  93. LIDOCAINE [Concomitant]
     Active Substance: LIDOCAINE
     Dosage: UNK
     Route: 061
     Dates: start: 20120307, end: 20120312
  94. MUPIROCIN [Concomitant]
     Active Substance: MUPIROCIN
     Indication: Pseudomonas infection
     Dosage: UNK
     Route: 061
     Dates: start: 20120307, end: 20120312
  95. MUPIROCIN [Concomitant]
     Active Substance: MUPIROCIN
     Dosage: UNK
     Route: 061
     Dates: start: 20120416
  96. CLONIDINE [Concomitant]
     Active Substance: CLONIDINE
     Indication: Agitation
     Dosage: UNK
     Route: 062
     Dates: start: 20120308
  97. CLONIDINE [Concomitant]
     Active Substance: CLONIDINE
     Dosage: UNK
     Route: 062
     Dates: start: 2015
  98. DIASTAT ACUDIAL [Concomitant]
     Active Substance: DIAZEPAM
     Indication: Constipation
     Dosage: UNK
     Route: 054
     Dates: start: 20120308
  99. DIPHENHYDRAMINE [Concomitant]
     Active Substance: DIPHENHYDRAMINE
     Indication: Sedation
     Dosage: UNK
     Route: 048
     Dates: start: 20120309, end: 20121103
  100. CLONAZEPAM [Concomitant]
     Active Substance: CLONAZEPAM
     Indication: Agitation
     Dosage: UNK
     Route: 048
     Dates: start: 20120309
  101. CLONAZEPAM [Concomitant]
     Active Substance: CLONAZEPAM
     Dosage: UNK
     Route: 048
     Dates: start: 20120309, end: 20150204
  102. MICONAZOLE NITRATE [Concomitant]
     Active Substance: MICONAZOLE NITRATE
     Indication: Candida infection
     Dosage: UNK
     Route: 061
     Dates: start: 20120312, end: 2015
  103. PREDNISOLONE [Concomitant]
     Active Substance: PREDNISOLONE
     Indication: Chronic obstructive pulmonary disease
     Dosage: UNK
     Route: 048
     Dates: start: 20120406, end: 201205
  104. CORTISPORIN [Concomitant]
     Active Substance: BACITRACIN ZINC\HYDROCORTISONE\NEOMYCIN SULFATE\POLYMYXIN B SULFATE
     Indication: Abscess drainage
     Dosage: UNK
     Route: 050
     Dates: start: 20121008, end: 201301
  105. OFLOXACIN [Concomitant]
     Active Substance: OFLOXACIN
     Indication: Otitis externa
     Dosage: UNK
     Route: 050
     Dates: start: 201211, end: 20150204
  106. CEFTAZIDIME [Concomitant]
     Active Substance: CEFTAZIDIME
     Indication: Secretion discharge
     Dosage: UNK
     Route: 042
     Dates: start: 20121201, end: 20121204
  107. CEFTAZIDIME [Concomitant]
     Active Substance: CEFTAZIDIME
     Indication: Pseudomonas infection
     Dosage: UNK
     Route: 042
     Dates: start: 20150623, end: 20150707
  108. BUDESONIDE [Concomitant]
     Active Substance: BUDESONIDE
     Indication: Obstructive airways disorder
     Dosage: UNK
     Route: 055
     Dates: start: 20121201, end: 20121204
  109. BUDESONIDE [Concomitant]
     Active Substance: BUDESONIDE
     Dosage: UNK
     Route: 055
     Dates: start: 2015, end: 20151018
  110. SCOPOLAMINE [Concomitant]
     Active Substance: SCOPOLAMINE
     Indication: Decreased bronchial secretion
     Dosage: UNK
     Route: 062
     Dates: start: 2013, end: 20150204
  111. SCOPOLAMINE [Concomitant]
     Active Substance: SCOPOLAMINE
     Indication: Drooling
     Dosage: UNK
     Route: 062
     Dates: start: 20131204, end: 2015
  112. SCOPOLAMINE [Concomitant]
     Active Substance: SCOPOLAMINE
     Dosage: UNK
     Route: 062
     Dates: start: 20150624
  113. ROBINUL [Concomitant]
     Active Substance: GLYCOPYRROLATE
     Indication: Increased bronchial secretion
     Dosage: UNK
     Route: 048
     Dates: start: 20130220
  114. CIPRODEX [Concomitant]
     Active Substance: CIPROFLOXACIN HYDROCHLORIDE\DEXAMETHASONE
     Indication: Otitis media
     Dosage: UNK
     Route: 050
     Dates: start: 20131202, end: 20150204
  115. BOTOX [Concomitant]
     Active Substance: ONABOTULINUMTOXINA
     Indication: Salivary hypersecretion
     Dosage: UNK
     Route: 050
     Dates: start: 20140331, end: 20140331
  116. MENACTRA [Concomitant]
     Active Substance: NEISSERIA MENINGITIDIS GROUP A CAPSULAR POLYSACCHARIDE DIPHTHERIA TOXOID CONJUGATE ANTIGEN\NEISSERIA
     Indication: Prophylaxis
     Dosage: UNK
     Route: 058
     Dates: start: 20150204, end: 20150204
  117. PNEUMOCOCCAL VACCINE POLYVALENT [Concomitant]
     Active Substance: PNEUMOCOCCAL VACCINE POLYVALENT
     Indication: Prophylaxis
     Dosage: UNK
     Route: 058
     Dates: start: 20150204, end: 20150204
  118. TETANUS TOXOID, REDUCED DIPHTHERIA TOXOID AND ACELLULAR PERTUSSIS VACC [Concomitant]
     Active Substance: TETANUS TOXOID, REDUCED DIPHTHERIA TOXOID AND ACELLULAR PERTUSSIS VACCINE ADSORBED, TDAP
     Indication: Prophylaxis
     Dosage: UNK
     Route: 058
     Dates: start: 20150204, end: 20150204
  119. INFLUENZA VIRUS VACCINE [Concomitant]
     Active Substance: INFLUENZA VIRUS VACCINE
     Indication: Prophylaxis
     Dosage: UNK
     Route: 058
     Dates: start: 20150204, end: 20150204
  120. INFLUENZA VIRUS VACCINE [Concomitant]
     Active Substance: INFLUENZA VIRUS VACCINE
     Dosage: UNK
     Route: 058
     Dates: start: 20150208, end: 20150208
  121. MENINGOCOCCAL POLYSACCHARIDE VACCINE A NOS [Concomitant]
     Active Substance: MENINGOCOCCAL POLYSACCHARIDE VACCINE A\NEISSERIA MENINGITIDIS GROUP A CAPSULAR POLYSACCHARIDE ANTIGE
     Indication: Prophylaxis
     Dosage: UNK
     Route: 058
     Dates: start: 20150208, end: 20150208
  122. PNEUMOCOCCAL VACCINE POLYVALENT NOS [Concomitant]
     Active Substance: PNEUMOCOCCAL VACCINE POLYVALENT
     Indication: Prophylaxis
     Dosage: UNK
     Route: 058
     Dates: start: 20150208, end: 20150208
  123. DIPHTHERIA AND TETANUS TOXOIDS AND PERTUSSIS VACCINE ADSORBED NOS [Concomitant]
     Active Substance: DIPHTHERIA AND TETANUS TOXOIDS AND PERTUSSIS VACCINE
     Indication: Prophylaxis
     Dosage: UNK
     Route: 058
     Dates: start: 20150208, end: 20150208
  124. GENTAMICIN [Concomitant]
     Active Substance: GENTAMICIN
     Indication: Pseudomonas infection
     Dosage: UNK
     Route: 042
     Dates: start: 20150619, end: 20150623
  125. PSYLLIUM [Concomitant]
     Active Substance: PLANTAGO SEED
     Indication: Constipation
     Dosage: UNK
     Route: 048
     Dates: start: 20150624
  126. VALACYCLOVIR [Concomitant]
     Active Substance: VALACYCLOVIR HYDROCHLORIDE
     Indication: Oral herpes
     Dosage: UNK
     Route: 048
     Dates: start: 20150801
  127. KEPPRA [Concomitant]
     Active Substance: LEVETIRACETAM
     Indication: Seizure
     Dosage: UNK
     Route: 048
     Dates: start: 20160205, end: 20160213
  128. KEPPRA [Concomitant]
     Active Substance: LEVETIRACETAM
     Dosage: UNK
     Route: 048
     Dates: start: 20160216
  129. DIAZEPAM [Concomitant]
     Active Substance: DIAZEPAM
     Indication: Seizure
     Dosage: UNK
     Route: 054
     Dates: start: 201603
  130. MICAFUNGIN [Concomitant]
     Active Substance: MICAFUNGIN SODIUM
     Indication: Vascular device infection
     Dosage: UNK
     Route: 042
     Dates: start: 20160319, end: 20160328
  131. CEFEPIME [Concomitant]
     Active Substance: CEFEPIME HYDROCHLORIDE
     Indication: Vascular device infection
     Dosage: UNK
     Route: 042
     Dates: start: 20160319, end: 20160322
  132. FLUCONAZOLE [Concomitant]
     Active Substance: FLUCONAZOLE
     Indication: Vascular device infection
     Dosage: UNK
     Route: 050
     Dates: start: 20160328, end: 20160404
  133. AMOXICILLIN [Concomitant]
     Active Substance: AMOXICILLIN
     Indication: Drainage
     Dosage: UNK
     Route: 048
     Dates: start: 20160608, end: 201606
  134. AMOXICILLIN [Concomitant]
     Active Substance: AMOXICILLIN
     Indication: Otitis media acute
     Dosage: UNK
     Route: 048
     Dates: start: 20170902

REACTIONS (4)
  - Subdural haematoma [Recovered/Resolved]
  - Altered state of consciousness [Recovered/Resolved]
  - Hydrocephalus [Recovered/Resolved]
  - Seizure [Recovered/Resolved]

NARRATIVE: CASE EVENT DATE: 20080916
